FAERS Safety Report 10797072 (Version 1)
Quarter: 2015Q1

REPORT INFORMATION
  Report Type: Spontaneous
  Country: US (occurrence: US)
  Receive Date: 20150216
  Receipt Date: 20150216
  Transmission Date: 20150721
  Serious: No
  Sender: FDA-Public Use
  Company Number: US-009507513-1502USA005054

PATIENT
  Sex: Female

DRUGS (1)
  1. CLARITIN [Suspect]
     Active Substance: LORATADINE
     Indication: HYPERSENSITIVITY
     Dosage: 5 MG, ONCE
     Route: 048
     Dates: start: 20150210

REACTIONS (3)
  - Hypersensitivity [Unknown]
  - Dysphagia [Unknown]
  - Throat tightness [Unknown]

NARRATIVE: CASE EVENT DATE: 20150210
